FAERS Safety Report 15640932 (Version 1)
Quarter: 2018Q4

REPORT INFORMATION
  Report Type: Spontaneous
  Country: PL (occurrence: PL)
  Receive Date: 20181120
  Receipt Date: 20181120
  Transmission Date: 20190205
  Serious: Yes (Other)
  Sender: FDA-Public Use
  Company Number: PL-SHIRE-PL201844409

PATIENT

DRUGS (3)
  1. KIOVIG [Suspect]
     Active Substance: HUMAN IMMUNOGLOBULIN G
     Indication: IMMUNODEFICIENCY COMMON VARIABLE
     Dosage: 0.5 TO 0.6 G/KG
     Route: 042
     Dates: start: 201509
  2. KIOVIG [Suspect]
     Active Substance: HUMAN IMMUNOGLOBULIN G
     Dosage: 50 G, EVERY 3-4 WEEKS
     Route: 042
  3. HUMAN IMMUNOGLOBULIN; HYALURONIDASE [Suspect]
     Active Substance: HUMAN IMMUNOGLOBULIN G\HYALURONIDASE RECOMBINANT HUMAN
     Indication: IMMUNODEFICIENCY COMMON VARIABLE
     Dosage: EVERY 3 OR 4 WEEKS
     Route: 058

REACTIONS (6)
  - Bronchiectasis [Unknown]
  - Bronchitis [Not Recovered/Not Resolved]
  - Weight increased [Unknown]
  - Pneumonitis [Unknown]
  - Exposure during pregnancy [Unknown]
  - Therapy partial responder [Unknown]
